FAERS Safety Report 5335057-7 (Version None)
Quarter: 2007Q2

REPORT INFORMATION
  Report Type: 
  Country: None (occurrence: None)
  Receive Date: 20070525
  Receipt Date: 20070524
  Transmission Date: 20071010
  Serious: Yes (Life-Threatening, Hospitalization)
  Sender: FDA-Public Use
  Company Number: B0472485A

PATIENT
  Age: 41 Year
  Sex: Female

DRUGS (2)
  1. LAPATINIB [Suspect]
     Dosage: 1250MG PER DAY
     Route: 048
     Dates: end: 20070513
  2. CAPECITABINE [Suspect]
     Route: 048
     Dates: end: 20070513

REACTIONS (2)
  - INFECTION [None]
  - PNEUMOTHORAX [None]
